FAERS Safety Report 16376158 (Version 1)
Quarter: 2019Q2

REPORT INFORMATION
  Report Type: Spontaneous
  Country: US (occurrence: US)
  Receive Date: 20190424
  Receipt Date: 20190424
  Transmission Date: 20190711
  Serious: Yes (Hospitalization)
  Sender: FDA-Public Use
  Company Number: None

PATIENT
  Age: 53 Year
  Sex: Male
  Weight: 66 kg

DRUGS (1)
  1. PEMBROLIZUMAB. [Suspect]
     Active Substance: PEMBROLIZUMAB
     Indication: ADENOCARCINOMA
     Route: 042
     Dates: start: 20180831, end: 20190214

REACTIONS (5)
  - Constipation [None]
  - Aspiration [None]
  - Pleural effusion [None]
  - Disease progression [None]
  - Oesophageal cancer metastatic [None]

NARRATIVE: CASE EVENT DATE: 20190304
